FAERS Safety Report 15599804 (Version 2)
Quarter: 2019Q1

REPORT INFORMATION
  Report Type: Spontaneous
  Country: US (occurrence: US)
  Receive Date: 20181108
  Receipt Date: 20190102
  Transmission Date: 20190417
  Serious: No
  Sender: FDA-Public Use
  Company Number: US-BIOGEN-2018BI00654653

PATIENT
  Sex: Female

DRUGS (1)
  1. TECFIDERA [Suspect]
     Active Substance: DIMETHYL FUMARATE
     Indication: MULTIPLE SCLEROSIS
     Route: 065
     Dates: start: 20150707, end: 20180901

REACTIONS (4)
  - Fatigue [Unknown]
  - Back disorder [Unknown]
  - Intervertebral disc degeneration [Unknown]
  - Personality disorder [Unknown]

NARRATIVE: CASE EVENT DATE: 2018
